FAERS Safety Report 18044007 (Version 1)
Quarter: 2020Q3

REPORT INFORMATION
  Report Type: Spontaneous
  Country: US (occurrence: US)
  Receive Date: 20200720
  Receipt Date: 20200720
  Transmission Date: 20201103
  Serious: No
  Sender: FDA-Public Use
  Company Number: US-SA-2020SA186140

PATIENT

DRUGS (2)
  1. DUPIXENT [Suspect]
     Active Substance: DUPILUMAB
     Indication: ECZEMA
     Dosage: 300 MG, QOW
     Route: 058
     Dates: start: 20200618
  2. TRIAMCINOLONE [TRIAMCINOLONE ACETONIDE] [Concomitant]

REACTIONS (1)
  - Pharyngeal cyst [Recovered/Resolved]

NARRATIVE: CASE EVENT DATE: 202006
